FAERS Safety Report 6459162-7 (Version None)
Quarter: 2009Q4

REPORT INFORMATION
  Report Type: 
  Country: None (occurrence: None)
  Receive Date: 20091125
  Receipt Date: 20091125
  Transmission Date: 20100525
  Serious: Yes (Other)
  Sender: FDA-Public Use
  Company Number: None

PATIENT
  Age: 35 Year
  Sex: Female

DRUGS (2)
  1. TUBERSOL [Suspect]
     Indication: TUBERCULIN TEST
     Dosage: I.D.
     Route: 023
     Dates: start: 20081010
  2. EXCEDRIN (MIGRAINE) [Concomitant]

REACTIONS (4)
  - DIZZINESS [None]
  - HEADACHE [None]
  - NAUSEA [None]
  - PAROSMIA [None]
